FAERS Safety Report 25765272 (Version 1)
Quarter: 2025Q3

REPORT INFORMATION
  Report Type: Spontaneous
  Country: GB (occurrence: GB)
  Receive Date: 20250905
  Receipt Date: 20250905
  Transmission Date: 20251020
  Serious: Yes (Other)
  Sender: RANBAXY
  Company Number: GB-RBHC-20-25-GBR-RB-0016358

PATIENT
  Age: 35 Year
  Sex: Female

DRUGS (7)
  1. CODEINE [Suspect]
     Active Substance: CODEINE
     Indication: Abdominal pain upper
     Route: 065
  2. CODEINE [Suspect]
     Active Substance: CODEINE
     Indication: Biliary colic
  3. CODEINE [Suspect]
     Active Substance: CODEINE
     Indication: Vomiting
  4. CODEINE PHOSPHATE\IBUPROFEN [Suspect]
     Active Substance: CODEINE PHOSPHATE\IBUPROFEN
     Indication: Abdominal pain upper
     Route: 065
  5. CODEINE PHOSPHATE\IBUPROFEN [Suspect]
     Active Substance: CODEINE PHOSPHATE\IBUPROFEN
     Indication: Biliary colic
  6. CODEINE PHOSPHATE\IBUPROFEN [Suspect]
     Active Substance: CODEINE PHOSPHATE\IBUPROFEN
     Indication: Vomiting
  7. BUPRENORPHINE HYDROCHLORIDE [Concomitant]
     Active Substance: BUPRENORPHINE HYDROCHLORIDE
     Indication: Product used for unknown indication
     Route: 065
     Dates: start: 202410

REACTIONS (5)
  - Near death experience [Unknown]
  - Drug dependence [Unknown]
  - Dependence [Unknown]
  - Dependence [Unknown]
  - Intentional overdose [Unknown]
